FAERS Safety Report 6566859-7 (Version None)
Quarter: 2010Q1

REPORT INFORMATION
  Report Type: 
  Country: None (occurrence: None)
  Receive Date: 20100202
  Receipt Date: 20100122
  Transmission Date: 20100710
  Serious: Yes (Hospitalization)
  Sender: FDA-Public Use
  Company Number: B0628592A

PATIENT
  Sex: Female

DRUGS (6)
  1. ZOPHREN [Suspect]
     Indication: PROPHYLAXIS OF NAUSEA AND VOMITING
     Dosage: 8MG CYCLIC
     Route: 042
     Dates: start: 20090217
  2. CARDIOXANE [Suspect]
     Indication: BREAST CANCER
     Dosage: 1900MG CYCLIC
     Route: 042
     Dates: start: 20090217
  3. DEXAMETHASONE [Suspect]
     Indication: BREAST CANCER
     Dosage: 20MG CYCLIC
     Route: 042
     Dates: start: 20090217
  4. FARMORUBICINE [Suspect]
     Indication: BREAST CANCER
     Dosage: 190MG CYCLIC
     Route: 042
     Dates: start: 20090217
  5. ENDOXAN [Suspect]
     Indication: BREAST CANCER
     Dosage: 950MG CYCLIC
     Route: 042
     Dates: start: 20090217
  6. FLUOROURACIL [Suspect]
     Indication: BREAST CANCER
     Dosage: 950MG CYCLIC
     Route: 042
     Dates: start: 20090217

REACTIONS (4)
  - DEEP VEIN THROMBOSIS [None]
  - NORMOCHROMIC NORMOCYTIC ANAEMIA [None]
  - OEDEMA PERIPHERAL [None]
  - PULMONARY EMBOLISM [None]
